FAERS Safety Report 17628339 (Version 2)
Quarter: 2020Q2

REPORT INFORMATION
  Report Type: Spontaneous
  Country: IN (occurrence: IN)
  Receive Date: 20200406
  Receipt Date: 20200509
  Transmission Date: 20200713
  Serious: Yes (Other)
  Sender: FDA-Public Use
  Company Number: IN-ROCHE-2575470

PATIENT
  Age: 49 Year
  Sex: Male

DRUGS (5)
  1. 5-FU [FLUOROURACIL] [Suspect]
     Active Substance: FLUOROURACIL
     Dosage: 46 HOURS D1 AND D 15 FOR 6 CYCLES
     Route: 040
  2. FOLINIC ACID [Suspect]
     Active Substance: LEUCOVORIN
     Indication: RECTAL ADENOCARCINOMA
     Dosage: D1 AND D15 FOR 6 CYCLES
     Route: 042
     Dates: start: 20160620, end: 20170527
  3. CAPECITABINE. [Suspect]
     Active Substance: CAPECITABINE
     Indication: RECTAL ADENOCARCINOMA
     Dosage: 2-0-3 D1-D5 WITH RT
     Route: 065
     Dates: start: 20160927, end: 20161105
  4. OXALIPLATIN. [Suspect]
     Active Substance: OXALIPLATIN
     Indication: RECTAL ADENOCARCINOMA
     Dosage: D1 AND D15 FOR 6 CYCLES
     Route: 042
     Dates: start: 20160620, end: 20170527
  5. 5-FU [FLUOROURACIL] [Suspect]
     Active Substance: FLUOROURACIL
     Indication: RECTAL ADENOCARCINOMA
     Route: 040
     Dates: start: 20160620, end: 20170527

REACTIONS (2)
  - Granulomatous liver disease [Recovered/Resolved]
  - Drug-induced liver injury [Recovered/Resolved]

NARRATIVE: CASE EVENT DATE: 20190227
